FAERS Safety Report 7959049-4 (Version None)
Quarter: 2011Q4

REPORT INFORMATION
  Report Type: 
  Country: None (occurrence: None)
  Receive Date: 20111206
  Receipt Date: 20111202
  Transmission Date: 20120403
  Serious: Yes (Other)
  Sender: FDA-Public Use
  Company Number: US-PFIZER INC-2011295052

PATIENT
  Sex: Female
  Weight: 73.9 kg

DRUGS (12)
  1. NEURONTIN [Suspect]
     Indication: RESTLESS LEGS SYNDROME
  2. NEURONTIN [Suspect]
     Indication: PAIN IN EXTREMITY
  3. ALLOPURINOL [Concomitant]
     Indication: GOUT
     Dosage: UNK
  4. PROCARDIA XL [Concomitant]
     Indication: HYPERTENSION
     Dosage: 50 MG, UNK
  5. NEURONTIN [Suspect]
     Indication: LIMB DISCOMFORT
     Dosage: 300 MG, 3X/DAY
     Route: 048
     Dates: start: 20111101, end: 20111101
  6. LOSARTAN [Concomitant]
     Indication: HYPERTENSION
     Dosage: 50 MG, UNK
  7. AMARYL [Concomitant]
     Dosage: 1 MG, 1X/DAY
  8. SYNTHROID [Concomitant]
     Indication: THYROID DISORDER
     Dosage: UNK
  9. COREG [Concomitant]
     Indication: CARDIAC DISORDER
     Dosage: 3.125 MG, UNK
  10. NEURONTIN [Suspect]
     Indication: MUSCLE SPASMS
  11. NEURONTIN [Suspect]
     Indication: TENDONITIS
     Dosage: 300 MG, 2X/DAY
     Route: 048
     Dates: start: 20111101
  12. NEURONTIN [Suspect]

REACTIONS (6)
  - MUSCULAR WEAKNESS [None]
  - ERYTHEMA [None]
  - DRUG INEFFECTIVE [None]
  - EXFOLIATIVE RASH [None]
  - SKIN BURNING SENSATION [None]
  - RASH [None]
